FAERS Safety Report 23358211 (Version 2)
Quarter: 2024Q1

REPORT INFORMATION
  Report Type: Spontaneous
  Country: US (occurrence: US)
  Receive Date: 20240102
  Receipt Date: 20240221
  Transmission Date: 20240409
  Serious: No
  Sender: FDA-Public Use
  Company Number: US-JNJFOC-20231227310

PATIENT

DRUGS (1)
  1. IMODIUM [Suspect]
     Active Substance: LOPERAMIDE HYDROCHLORIDE
     Indication: Rectal cancer
     Dosage: MAY TAKE UP TO 9 A DAY
     Route: 048

REACTIONS (6)
  - Product use in unapproved indication [Unknown]
  - Therapeutic response unexpected [Unknown]
  - Incorrect product administration duration [Unknown]
  - Product package associated injury [Unknown]
  - Product blister packaging issue [Unknown]
  - Prescribed overdose [Unknown]
